FAERS Safety Report 14639590 (Version 1)
Quarter: 2018Q1

REPORT INFORMATION
  Report Type: Report from Study
  Country: US (occurrence: US)
  Receive Date: 20180315
  Receipt Date: 20180315
  Transmission Date: 20180509
  Serious: Yes (Disabling)
  Sender: FDA-Public Use
  Company Number: US-GILEAD-2017-0307052

PATIENT
  Age: 53 Year
  Sex: Female

DRUGS (7)
  1. REMODULIN [Suspect]
     Active Substance: TREPROSTINIL
     Dosage: 109 NG/KG/MIN, UNK
     Route: 065
  2. GABAPENTIN. [Concomitant]
     Active Substance: GABAPENTIN
  3. REMODULIN [Suspect]
     Active Substance: TREPROSTINIL
     Indication: PRODUCT USED FOR UNKNOWN INDICATION
     Dosage: UNK
     Route: 065
  4. ORENITRAM [Concomitant]
     Active Substance: TREPROSTINIL
  5. REMODULIN [Suspect]
     Active Substance: TREPROSTINIL
     Dosage: 82 MG/KG/MIN, UNK
     Route: 065
     Dates: start: 201801
  6. ADCIRCA [Concomitant]
     Active Substance: TADALAFIL
  7. AMBRISENTAN [Suspect]
     Active Substance: AMBRISENTAN
     Indication: PRODUCT USED FOR UNKNOWN INDICATION
     Dosage: 10 MG, QD
     Route: 065
     Dates: start: 20170111

REACTIONS (20)
  - Swelling [Unknown]
  - Headache [Not Recovered/Not Resolved]
  - Peripheral swelling [Unknown]
  - Infusion site pain [Unknown]
  - Pain [Not Recovered/Not Resolved]
  - Loss of personal independence in daily activities [Unknown]
  - Localised oedema [Not Recovered/Not Resolved]
  - Pain [Recovering/Resolving]
  - Gait disturbance [Not Recovered/Not Resolved]
  - Infusion site oedema [Not Recovered/Not Resolved]
  - Abdominal pain [Not Recovered/Not Resolved]
  - Pain in extremity [Unknown]
  - Device dislocation [Recovered/Resolved]
  - Infusion site pain [Not Recovered/Not Resolved]
  - Device malfunction [Unknown]
  - Erythema [Unknown]
  - Oedema [Unknown]
  - Nausea [Unknown]
  - Arthralgia [Unknown]
  - Feeling abnormal [Unknown]

NARRATIVE: CASE EVENT DATE: 201711
